FAERS Safety Report 6573083-0 (Version None)
Quarter: 2010Q1

REPORT INFORMATION
  Report Type: 
  Country: None (occurrence: None)
  Receive Date: 20100208
  Receipt Date: 20100127
  Transmission Date: 20100710
  Serious: Yes (Hospitalization)
  Sender: FDA-Public Use
  Company Number: JP-ELI_LILLY_AND_COMPANY-JP200909000713

PATIENT
  Sex: Male
  Weight: 66.8 kg

DRUGS (15)
  1. PEMETREXED [Suspect]
     Indication: NON-SMALL CELL LUNG CANCER
     Dosage: 500 MG/M2, EVERY THREE WEEKS
     Route: 042
     Dates: start: 20090818, end: 20090818
  2. PEMETREXED [Suspect]
     Dosage: 375 MG, EVERY THREE WEEKS
     Route: 042
     Dates: start: 20090915
  3. CISPLATIN [Suspect]
     Indication: NON-SMALL CELL LUNG CANCER
     Dosage: 75 MG/M2, EVERY THREE WEEKS
     Route: 042
     Dates: start: 20090818, end: 20090818
  4. CISPLATIN [Suspect]
     Dosage: 56.25 MG/M2, EVERY THREE WEEKS
     Dates: start: 20090915
  5. AG-013736(AXITINIB) [Suspect]
     Indication: NON-SMALL CELL LUNG CANCER
     Dosage: 5 MG, 2/D
     Route: 048
     Dates: start: 20090818, end: 20090824
  6. AG-013736(AXITINIB) [Suspect]
     Dosage: 3 MG, 2/D
     Route: 048
     Dates: start: 20090831, end: 20090919
  7. AG-013736(AXITINIB) [Suspect]
     Dosage: 3 MG, 2/D
     Route: 048
     Dates: start: 20090924, end: 20091005
  8. AG-013736(AXITINIB) [Suspect]
     Dosage: 3 MG, 2/D
     Route: 048
     Dates: start: 20091016
  9. DIOVAN [Concomitant]
     Indication: HYPERTENSION
     Dosage: 80 MG, DAILY (1/D)
     Route: 048
  10. BEZATOL [Concomitant]
     Indication: HYPERLIPIDAEMIA
     Route: 048
  11. TRICOR [Concomitant]
     Indication: HYPERLIPIDAEMIA
     Route: 048
     Dates: end: 20090814
  12. MAGLAX [Concomitant]
     Indication: CONSTIPATION
     Route: 048
     Dates: start: 20090818
  13. AMLODIPINE [Concomitant]
     Indication: HYPERTENSION
     Dosage: 5 MG, DAILY (1/D)
     Route: 048
     Dates: start: 20090819
  14. ZOFRAN ZYDIS [Concomitant]
     Indication: PROPHYLAXIS OF NAUSEA AND VOMITING
     Route: 048
     Dates: start: 20090819, end: 20090820
  15. MYSLEE [Concomitant]
     Indication: INSOMNIA
     Dosage: UNK, UNK
     Route: 048
     Dates: start: 20090820

REACTIONS (1)
  - DEPRESSED LEVEL OF CONSCIOUSNESS [None]
